FAERS Safety Report 24243710 (Version 2)
Quarter: 2025Q2

REPORT INFORMATION
  Report Type: Spontaneous
  Country: US (occurrence: US)
  Receive Date: 20240823
  Receipt Date: 20250403
  Transmission Date: 20250717
  Serious: No
  Sender: CHIESI
  Company Number: US-AMRYT PHARMACEUTICALS DAC-AEGR007357

PATIENT
  Sex: Female

DRUGS (1)
  1. METRELEPTIN [Suspect]
     Active Substance: METRELEPTIN
     Indication: Congenital generalised lipodystrophy
     Dosage: UNK UNK, QD
     Route: 058

REACTIONS (1)
  - Maternal exposure during pregnancy [Unknown]
